FAERS Safety Report 6152848-3 (Version None)
Quarter: 2009Q2

REPORT INFORMATION
  Report Type: 
  Country: None (occurrence: None)
  Receive Date: 20090413
  Receipt Date: 20090330
  Transmission Date: 20091009
  Serious: Yes (Other)
  Sender: FDA-Public Use
  Company Number: US-PFIZER INC-2009191240

PATIENT
  Age: 23 Year
  Sex: Female

DRUGS (2)
  1. CHANTIX [Suspect]
     Dosage: UNK
  2. ROSUVASTATIN [Concomitant]
     Indication: DYSLIPIDAEMIA
     Dosage: UNK

REACTIONS (1)
  - ANAPHYLACTIC REACTION [None]
